FAERS Safety Report 26157156 (Version 1)
Quarter: 2025Q4

REPORT INFORMATION
  Report Type: Spontaneous
  Country: US (occurrence: US)
  Receive Date: 20251215
  Receipt Date: 20251215
  Transmission Date: 20260117
  Serious: No
  Sender: JOHNSON AND JOHNSON
  Company Number: US-JNJFOC-20251217094

PATIENT
  Age: 2 Month
  Weight: 5 kg

DRUGS (1)
  1. IMAAVY [Suspect]
     Active Substance: NIPOCALIMAB-AAHU
     Indication: Product used for unknown indication
     Route: 042

REACTIONS (1)
  - Off label use [Unknown]
